FAERS Safety Report 5854100-X (Version None)
Quarter: 2008Q3

REPORT INFORMATION
  Report Type: 
  Country: None (occurrence: None)
  Receive Date: 20080822
  Receipt Date: 20080812
  Transmission Date: 20090109
  Serious: Yes (Other)
  Sender: FDA-Public Use
  Company Number: AT-ROCHE-581652

PATIENT

DRUGS (1)
  1. PYRIMETHAMINE/SULFADOXINE [Suspect]
     Indication: MALARIA PROPHYLAXIS
     Route: 064

REACTIONS (1)
  - SMALL FOR DATES BABY [None]
